FAERS Safety Report 24009327 (Version 1)
Quarter: 2024Q2

REPORT INFORMATION
  Report Type: Spontaneous
  Country: IN (occurrence: IN)
  Receive Date: 20240625
  Receipt Date: 20240625
  Transmission Date: 20240716
  Serious: Yes (Death)
  Sender: FDA-Public Use
  Company Number: IN-ROCHE-3516382

PATIENT
  Age: 70 Year
  Sex: Female
  Weight: 49.7 kg

DRUGS (1)
  1. POLIVY [Suspect]
     Active Substance: POLATUZUMAB VEDOTIN-PIIQ
     Indication: Non-Hodgkin^s lymphoma
     Route: 042
     Dates: start: 20240221

REACTIONS (3)
  - Death [Fatal]
  - Off label use [Unknown]
  - Off label use [Unknown]
